FAERS Safety Report 5977161-6 (Version None)
Quarter: 2008Q4

REPORT INFORMATION
  Report Type: 
  Country: None (occurrence: None)
  Receive Date: 20081201
  Receipt Date: 20081201
  Transmission Date: 20090506
  Serious: Yes (Other)
  Sender: FDA-Public Use
  Company Number: None

PATIENT
  Age: 51 Year
  Sex: Female
  Weight: 74.8435 kg

DRUGS (1)
  1. CHANTIX [Suspect]
     Dosage: .5 MG BID FOR 3-DAY PO 1MG BID PO
     Route: 048
     Dates: start: 20081101, end: 20081127

REACTIONS (4)
  - CONTUSION [None]
  - HEARING IMPAIRED [None]
  - TINNITUS [None]
  - VASCULAR RUPTURE [None]
